FAERS Safety Report 10620198 (Version 2)
Quarter: 2015Q1

REPORT INFORMATION
  Report Type: Spontaneous
  Country: US (occurrence: US)
  Receive Date: 20141202
  Receipt Date: 20150225
  Transmission Date: 20150720
  Serious: Yes (Other)
  Sender: FDA-Public Use
  Company Number: US-BAYER-2014-177371

PATIENT
  Age: 26 Year
  Sex: Female
  Weight: 54.42 kg

DRUGS (3)
  1. MIRENA [Suspect]
     Active Substance: LEVONORGESTREL
     Indication: CONTRACEPTION
     Dosage: 20 MCG/24HR, CONT
     Route: 015
     Dates: start: 20100215, end: 20110404
  2. FERROUS SULFATE [Concomitant]
     Active Substance: FERROUS SULFATE\FERROUS SULFATE, DRIED
     Dosage: 325 MG, QD
     Route: 048
  3. PRENATAL VITAMINS [Concomitant]
     Active Substance: VITAMINS
     Dosage: 1 DAILY
     Route: 048

REACTIONS (9)
  - Emotional distress [None]
  - Device issue [None]
  - Genital haemorrhage [None]
  - Anxiety [None]
  - Injury [None]
  - Depression [None]
  - Uterine perforation [None]
  - Device difficult to use [None]
  - Pain [None]

NARRATIVE: CASE EVENT DATE: 201003
